FAERS Safety Report 4918451-5 (Version None)
Quarter: 2006Q1

REPORT INFORMATION
  Report Type: 
  Country: None (occurrence: None)
  Receive Date: 20060222
  Receipt Date: 20041117
  Transmission Date: 20060701
  Serious: Yes (Hospitalization)
  Sender: FDA-Public Use
  Company Number: 2004-11-0306

PATIENT
  Age: 21 Year
  Sex: Female

DRUGS (2)
  1. BUPRENORPHINE HCL [Suspect]
     Indication: DRUG USE FOR UNKNOWN INDICATION
     Dosage: DOSAGE UNKNOWN
     Route: 042
     Dates: start: 20000101, end: 20051016
  2. HEROIN [Concomitant]
     Indication: DRUG USE FOR UNKNOWN INDICATION
     Dosage: UNKNOWN DOSAGE
     Dates: start: 20010901

REACTIONS (8)
  - AGITATION [None]
  - ANXIETY [None]
  - INTENTIONAL DRUG MISUSE [None]
  - LOGORRHOEA [None]
  - STAPHYLOCOCCAL INFECTION [None]
  - SUBCUTANEOUS ABSCESS [None]
  - SUICIDE ATTEMPT [None]
  - TOOTHACHE [None]
